FAERS Safety Report 5343423-9 (Version None)
Quarter: 2007Q2

REPORT INFORMATION
  Report Type: 
  Country: None (occurrence: None)
  Receive Date: 20070531
  Receipt Date: 20070423
  Transmission Date: 20071010
  Serious: Yes (Life-Threatening, Hospitalization)
  Sender: FDA-Public Use
  Company Number: FR-GUERBET-20070099

PATIENT
  Age: 65 Year
  Sex: Male

DRUGS (1)
  1. DOTAREM: 0665654A / MEGLUMINE GADOTERATE [Suspect]
     Indication: NUCLEAR MAGNETIC RESONANCE IMAGING
     Dosage: 20, ML MILLILITRE(S), , ?, TOTAL
     Route: 042
     Dates: start: 20070411, end: 20070411

REACTIONS (7)
  - CARDIAC ARREST [None]
  - CLONIC CONVULSION [None]
  - COMA [None]
  - CONTRAST MEDIA REACTION [None]
  - LOSS OF CONSCIOUSNESS [None]
  - RESPIRATORY DISTRESS [None]
  - VOMITING [None]
